FAERS Safety Report 7171253-4 (Version None)
Quarter: 2010Q4

REPORT INFORMATION
  Report Type: 
  Country: None (occurrence: None)
  Receive Date: 20101217
  Receipt Date: 20101208
  Transmission Date: 20110411
  Serious: Yes (Life-Threatening, Hospitalization, Other)
  Sender: FDA-Public Use
  Company Number: DE-GENZYME-CAMP-1001109

PATIENT
  Sex: Female
  Weight: 60 kg

DRUGS (5)
  1. CAMPATH [Suspect]
     Indication: CHRONIC LYMPHOCYTIC LEUKAEMIA
     Dosage: 3 MG, UNK
     Route: 058
     Dates: start: 20100830
  2. CAMPATH [Suspect]
     Dosage: 10 MG, UNK
     Route: 058
  3. CAMPATH [Suspect]
     Dosage: 15 MG, UNK
     Route: 058
     Dates: end: 20101025
  4. VALTREX [Concomitant]
     Indication: PRODUCT USED FOR UNKNOWN INDICATION
     Dosage: UNK
     Route: 065
  5. COTRIM [Concomitant]
     Indication: PRODUCT USED FOR UNKNOWN INDICATION
     Dosage: UNK
     Route: 065

REACTIONS (2)
  - GASTROINTESTINAL HAEMORRHAGE [None]
  - THROMBOCYTOPENIA [None]
